FAERS Safety Report 12393373 (Version 1)
Quarter: 2016Q2

REPORT INFORMATION
  Report Type: Spontaneous
  Country: TR (occurrence: TR)
  Receive Date: 20160523
  Receipt Date: 20160523
  Transmission Date: 20160815
  Serious: Yes (Hospitalization)
  Sender: FDA-Public Use
  Company Number: TR-ASTELLAS-2016US019763

PATIENT
  Age: 53 Year
  Sex: Male

DRUGS (6)
  1. TACROLIMUS. [Suspect]
     Active Substance: TACROLIMUS
     Indication: RENAL TRANSPLANT
     Dosage: UNK UNK, UNKNOWN FREQ.
     Route: 065
  2. MYCOPHENOLATE MOFETIL. [Suspect]
     Active Substance: MYCOPHENOLATE MOFETIL
     Indication: RENAL TRANSPLANT
     Dosage: UNK UNK, UNKNOWN FREQ.
     Route: 065
  3. PREDNISOLONE. [Suspect]
     Active Substance: PREDNISOLONE
     Indication: RENAL TRANSPLANT
     Dosage: UNK, UNKNOWN FREQ.
     Route: 065
  4. METHOTREXATE [Suspect]
     Active Substance: METHOTREXATE
     Indication: RHEUMATOID ARTHRITIS
     Route: 065
  5. PREDNISOLONE. [Suspect]
     Active Substance: PREDNISOLONE
     Route: 065
  6. COLCHICINE. [Suspect]
     Active Substance: COLCHICINE
     Indication: RENAL TRANSPLANT
     Dosage: UNK UNK, UNKNOWN FREQ.
     Route: 065

REACTIONS (14)
  - Ileus [Recovered/Resolved]
  - Necrotising colitis [Recovered/Resolved]
  - Metabolic acidosis [Recovered/Resolved]
  - Delirium [Recovered/Resolved]
  - Emphysema [Recovered/Resolved]
  - Stenotrophomonas infection [Recovered/Resolved]
  - Toxicity to various agents [Recovered/Resolved]
  - Respiratory distress [Recovered/Resolved]
  - Rheumatoid arthritis [Recovered/Resolved]
  - Atelectasis [Recovered/Resolved]
  - Colitis [Recovered/Resolved]
  - Hypotension [Recovered/Resolved]
  - Neutropenia [Recovered/Resolved]
  - Pancytopenia [Recovered/Resolved]
